FAERS Safety Report 10690013 (Version 1)
Quarter: 2015Q1

REPORT INFORMATION
  Report Type: Spontaneous
  Country: US (occurrence: None)
  Receive Date: 20150102
  Receipt Date: 20150102
  Transmission Date: 20150720
  Serious: No
  Sender: FDA-Public Use
  Company Number: None

PATIENT
  Age: 63 Year
  Sex: Male

DRUGS (9)
  1. CALTRATE [Concomitant]
     Active Substance: CALCIUM CARBONATE
  2. BYDUREON [Concomitant]
     Active Substance: EXENATIDE
  3. ASA [Concomitant]
     Active Substance: ASPIRIN
  4. ALPRAZOLAM. [Concomitant]
     Active Substance: ALPRAZOLAM
  5. CRESTOR [Concomitant]
     Active Substance: ROSUVASTATIN CALCIUM
  6. FERGON [Concomitant]
     Active Substance: FERROUS GLUCONATE
  7. XTANDI [Suspect]
     Active Substance: ENZALUTAMIDE
     Indication: PROSTATE CANCER
     Route: 048
     Dates: start: 20140823, end: 201412
  8. EXTAVIA [Concomitant]
     Active Substance: INTERFERON BETA-1B
  9. METFORMIN [Concomitant]
     Active Substance: METFORMIN HYDROCHLORIDE

REACTIONS (1)
  - Prostatic specific antigen increased [None]

NARRATIVE: CASE EVENT DATE: 201412
